FAERS Safety Report 6189344-3 (Version None)
Quarter: 2009Q2

REPORT INFORMATION
  Report Type: 
  Country: None (occurrence: None)
  Receive Date: 20090512
  Receipt Date: 20090422
  Transmission Date: 20091009
  Serious: Yes (Death, Life-Threatening, Hospitalization, Other)
  Sender: FDA-Public Use
  Company Number: ADE# 09-130DPR

PATIENT
  Age: 67 Year
  Sex: Male

DRUGS (5)
  1. DIGOXIN [Suspect]
     Indication: CARDIAC DISORDER
     Dosage: FEW YEARS AGO
  2. RANEXA [Concomitant]
  3. HUMULIN INSULIN [Concomitant]
  4. NEXIUM [Concomitant]
  5. OTHER UNSPECIFIED MEDICATIONS [Concomitant]

REACTIONS (6)
  - ACUTE MYOCARDIAL INFARCTION [None]
  - ACUTE RESPIRATORY FAILURE [None]
  - GASTROINTESTINAL HAEMORRHAGE [None]
  - HAEMORRHAGE [None]
  - RENAL FAILURE ACUTE [None]
  - STRESS [None]
